FAERS Safety Report 7743795 (Version 2)
Quarter: 2013Q3

REPORT INFORMATION
  Report Type: Report from Study
  Country: NL (occurrence: NL)
  Receive Date: 20101230
  Receipt Date: 20130828
  Transmission Date: 20140515
  Serious: Yes (Death, Hospitalization)
  Sender: FDA-Public Use
  Company Number: NL-ELI_LILLY_AND_COMPANY-NL201011006448

PATIENT
  Age: 67 Year
  Sex: Male
  Weight: 86.5 kg

DRUGS (9)
  1. PEMETREXED [Suspect]
     Indication: NON-SMALL CELL LUNG CANCER STAGE III
     Dosage: 950 MG, UNKNOWN
     Route: 042
     Dates: start: 20101122
  2. CISPLATIN [Suspect]
     Indication: NON-SMALL CELL LUNG CANCER STAGE III
     Dosage: 140 MG, UNKNOWN
     Route: 042
     Dates: start: 20101122
  3. RADIATION [Suspect]
     Indication: NON-SMALL CELL LUNG CANCER STAGE III
     Dosage: 2 GY, DAILY (1/D)
     Dates: start: 20101122
  4. FOLIC ACID [Concomitant]
     Indication: PROPHYLAXIS
     Dates: start: 20101016
  5. VITAMIN B12 [Concomitant]
     Indication: PROPHYLAXIS
     Dates: start: 20101117
  6. DEXAMETHASONE [Concomitant]
     Indication: PROPHYLAXIS
     Dates: start: 20101121, end: 20101123
  7. PARACETAMOL W/TRAMADOL [Concomitant]
     Indication: PAIN
     Dates: start: 20101108
  8. DALTEPARIN [Concomitant]
     Indication: PROPHYLAXIS
     Dates: start: 20101001
  9. LATANOPROST W/TIMOLOL [Concomitant]
     Indication: GLAUCOMA
     Dates: start: 1985

REACTIONS (2)
  - Death [Fatal]
  - Pleural effusion [Recovered/Resolved]
